FAERS Safety Report 15319383 (Version 2)
Quarter: 2018Q3

REPORT INFORMATION
  Report Type: Spontaneous
  Country: US (occurrence: US)
  Receive Date: 20180827
  Receipt Date: 20180920
  Transmission Date: 20181010
  Serious: No
  Sender: FDA-Public Use
  Company Number: US-JNJFOC-20180812794

PATIENT
  Sex: Female
  Weight: 117 kg

DRUGS (15)
  1. VITAMIN B12 [Concomitant]
     Active Substance: CYANOCOBALAMIN
  2. BIOTIN [Concomitant]
     Active Substance: BIOTIN
  3. DOXYCYCLINE. [Concomitant]
     Active Substance: DOXYCYCLINE
  4. DAPSONE. [Concomitant]
     Active Substance: DAPSONE
  5. FLUOROMETHOLONE. [Concomitant]
     Active Substance: FLUOROMETHOLONE
  6. AUGMENTIN [Concomitant]
     Active Substance: AMOXICILLIN\CLAVULANATE POTASSIUM
  7. ACYCLOVIR. [Concomitant]
     Active Substance: ACYCLOVIR
  8. CALCIUM CITRATE WITH VITAMIN D3 [Concomitant]
  9. IMBRUVICA [Suspect]
     Active Substance: IBRUTINIB
     Indication: GRAFT VERSUS HOST DISEASE
     Route: 048
     Dates: start: 20180511, end: 2018
  10. FLUCONAZOLE. [Concomitant]
     Active Substance: FLUCONAZOLE
  11. DULOXETINE. [Concomitant]
     Active Substance: DULOXETINE
  12. IMBRUVICA [Suspect]
     Active Substance: IBRUTINIB
     Indication: GRAFT VERSUS HOST DISEASE
     Route: 048
     Dates: start: 20171227, end: 20180510
  13. VITAMIN D3 [Concomitant]
     Active Substance: CHOLECALCIFEROL
  14. ASPIRIN. [Concomitant]
     Active Substance: ASPIRIN
  15. BUPROPION. [Concomitant]
     Active Substance: BUPROPION

REACTIONS (1)
  - Drug ineffective [Unknown]
